FAERS Safety Report 7492790-9 (Version None)
Quarter: 2011Q2

REPORT INFORMATION
  Report Type: 
  Country: None (occurrence: None)
  Receive Date: 20110519
  Receipt Date: 20110510
  Transmission Date: 20111010
  Serious: Yes (Other)
  Sender: FDA-Public Use
  Company Number: US-BAYER-2011-039994

PATIENT
  Age: 55 Year
  Sex: Female

DRUGS (1)
  1. AVELOX [Suspect]
     Indication: ASTHMA
     Dosage: UNK
     Dates: start: 20110502, end: 20110509

REACTIONS (2)
  - TENDONITIS [None]
  - ABASIA [None]
